FAERS Safety Report 6747066-1 (Version None)
Quarter: 2010Q2

REPORT INFORMATION
  Report Type: 
  Country: None (occurrence: None)
  Receive Date: 20100528
  Receipt Date: 20100519
  Transmission Date: 20101027
  Serious: Yes (Hospitalization)
  Sender: FDA-Public Use
  Company Number: US-PFIZER INC-2010048497

PATIENT
  Sex: Female
  Weight: 48.98 kg

DRUGS (7)
  1. OXALIPLATIN [Suspect]
     Indication: COLORECTAL CANCER
     Dosage: 126 MG, EVERY 2 WEEKS
     Route: 042
     Dates: start: 20090105
  2. *FLUOROURACIL [Suspect]
     Indication: COLORECTAL CANCER
     Dosage: 590 MG, EVERY 2 WEEKS
     Route: 040
     Dates: start: 20090105
  3. *FLUOROURACIL [Suspect]
     Dosage: 3550 MG, EVERY 2 WEEKS
     Route: 041
     Dates: start: 20090105
  4. *FOLINIC ACID [Suspect]
     Indication: COLORECTAL CANCER
     Dosage: 590 MG, EVERY 2 WEEKS
     Route: 042
     Dates: start: 20090105
  5. SUNITINIB MALATE [Suspect]
     Indication: COLORECTAL CANCER
     Dosage: 37.5 MG, 1X/DAY
     Route: 048
     Dates: start: 20090105
  6. OXYCODONE [Concomitant]
     Indication: PAIN
     Dosage: 5 MG, AS NEEDED
     Dates: start: 20091008
  7. FENTANYL [Concomitant]
     Indication: PAIN
     Dosage: 50 MCG, EVERY 3 DAYS
     Route: 062
     Dates: start: 20090616

REACTIONS (1)
  - PNEUMONIA [None]
